FAERS Safety Report 6004694-9 (Version None)
Quarter: 2008Q4

REPORT INFORMATION
  Report Type: 
  Country: None (occurrence: None)
  Receive Date: 20081216
  Receipt Date: 20081211
  Transmission Date: 20090506
  Serious: Yes (Other)
  Sender: FDA-Public Use
  Company Number: US-PURDUE-USA_2008_0036259

PATIENT
  Age: 60 Year
  Sex: Female

DRUGS (3)
  1. OXYCONTIN [Suspect]
     Indication: PROCEDURAL PAIN
     Dates: start: 20030101
  2. ANTIHYPERTENSIVES [Concomitant]
  3. HYPNOTICS AND SEDATIVES [Concomitant]

REACTIONS (2)
  - DELUSION [None]
  - HALLUCINATION [None]
